FAERS Safety Report 16940516 (Version 1)
Quarter: 2019Q4

REPORT INFORMATION
  Report Type: Spontaneous
  Country: FR (occurrence: FR)
  Receive Date: 20191021
  Receipt Date: 20191021
  Transmission Date: 20200122
  Serious: Yes (Hospitalization)
  Sender: FDA-Public Use
  Company Number: FR-SUN PHARMACEUTICAL INDUSTRIES LTD-2019R1-223754

PATIENT
  Age: 37 Year
  Sex: Male
  Weight: 80 kg

DRUGS (2)
  1. PLAQUENIL [Suspect]
     Active Substance: HYDROXYCHLOROQUINE SULFATE
     Indication: POISONING DELIBERATE
     Dosage: 400 MILLIGRAM
     Route: 048
     Dates: start: 20190902, end: 20190902
  2. PARACETAMOL [Suspect]
     Active Substance: ACETAMINOPHEN
     Indication: POISONING DELIBERATE
     Dosage: 4 GRAM
     Route: 048
     Dates: start: 20190902, end: 20190902

REACTIONS (2)
  - Somnolence [Recovered/Resolved]
  - Irregular breathing [Recovered/Resolved]

NARRATIVE: CASE EVENT DATE: 20190902
